FAERS Safety Report 23320353 (Version 1)
Quarter: 2023Q4

REPORT INFORMATION
  Report Type: Spontaneous
  Country: US (occurrence: US)
  Receive Date: 20231220
  Receipt Date: 20231220
  Transmission Date: 20240109
  Serious: No
  Sender: FDA-Public Use
  Company Number: US-PROVENTION BIO, INC.-US-PRAG-23-00087

PATIENT
  Age: 58 Year
  Sex: Male

DRUGS (5)
  1. TZIELD [Suspect]
     Active Substance: TEPLIZUMAB-MZWV
     Indication: Product used for unknown indication
     Dosage: 110 MCG
     Route: 042
     Dates: start: 20230921, end: 20230921
  2. TZIELD [Suspect]
     Active Substance: TEPLIZUMAB-MZWV
     Dosage: 220 MCG
     Route: 042
     Dates: start: 20230922, end: 20230922
  3. TZIELD [Suspect]
     Active Substance: TEPLIZUMAB-MZWV
     Dosage: 440 MCG
     Route: 042
     Dates: start: 20230923, end: 20230923
  4. TZIELD [Suspect]
     Active Substance: TEPLIZUMAB-MZWV
     Dosage: 890 MCG
     Route: 042
     Dates: start: 20230924, end: 20230924
  5. TZIELD [Suspect]
     Active Substance: TEPLIZUMAB-MZWV
     Dosage: 1840 MCG
     Route: 042
     Dates: start: 20230925, end: 20231004

REACTIONS (7)
  - Gastrointestinal disorder [Unknown]
  - Pruritus [Unknown]
  - Fatigue [Unknown]
  - Nausea [Recovering/Resolving]
  - Diarrhoea [Unknown]
  - Rash [Unknown]
  - Urticaria [Unknown]

NARRATIVE: CASE EVENT DATE: 20230921
